FAERS Safety Report 9012471 (Version 1)
Quarter: 2013Q1

REPORT INFORMATION
  Report Type: Spontaneous
  Country: SK (occurrence: SK)
  Receive Date: 20130114
  Receipt Date: 20130114
  Transmission Date: 20140127
  Serious: Yes (Death, Other)
  Sender: FDA-Public Use
  Company Number: SK-CELGENEUS-260-21880-13011166

PATIENT
  Age: 74 Year
  Sex: 0

DRUGS (1)
  1. REVLIMID [Suspect]
     Indication: MYELODYSPLASTIC SYNDROME
     Route: 048

REACTIONS (2)
  - Cardiac disorder [Fatal]
  - Haemorrhagic stroke [Unknown]
